FAERS Safety Report 21345880 (Version 1)
Quarter: 2022Q3

REPORT INFORMATION
  Report Type: Spontaneous
  Country: KR (occurrence: KR)
  Receive Date: 20220916
  Receipt Date: 20220916
  Transmission Date: 20221027
  Serious: Yes (Other)
  Sender: FDA-Public Use
  Company Number: KR-JNJFOC-20220918958

PATIENT
  Age: 24 Year
  Sex: Female

DRUGS (9)
  1. SPRAVATO [Suspect]
     Active Substance: ESKETAMINE
     Indication: Depression
     Dosage: 6 DOSES
     Dates: start: 20210804, end: 20210828
  2. SPRAVATO [Suspect]
     Active Substance: ESKETAMINE
     Indication: Major depression
     Dosage: 2 DOSES
     Dates: start: 20210906, end: 20210916
  3. SPRAVATO [Suspect]
     Active Substance: ESKETAMINE
     Indication: Suicidal ideation
     Dosage: 1 DOSES
     Dates: start: 20211023, end: 20211023
  4. SPRAVATO [Suspect]
     Active Substance: ESKETAMINE
     Dosage: 1 DOSE
     Dates: start: 20211206
  5. ESCITALOPRAM [Concomitant]
     Active Substance: ESCITALOPRAM OXALATE
  6. MIRTAZAPINE [Concomitant]
     Active Substance: MIRTAZAPINE
  7. ALPRAZOLAM [Concomitant]
     Active Substance: ALPRAZOLAM
  8. CLONAZEPAM [Concomitant]
     Active Substance: CLONAZEPAM
  9. QUETIAPINE [Concomitant]
     Active Substance: QUETIAPINE

REACTIONS (3)
  - Suicidal ideation [Recovering/Resolving]
  - Depression [Unknown]
  - Inappropriate schedule of product administration [Unknown]

NARRATIVE: CASE EVENT DATE: 20210801
